FAERS Safety Report 6992672-2 (Version None)
Quarter: 2010Q3

REPORT INFORMATION
  Report Type: 
  Country: None (occurrence: None)
  Receive Date: 20100916
  Receipt Date: 20100916
  Transmission Date: 20110219
  Serious: Yes (Other)
  Sender: FDA-Public Use
  Company Number: None

PATIENT
  Age: 42 Year
  Sex: Female
  Weight: 59.8748 kg

DRUGS (1)
  1. REMICADE [Suspect]
     Indication: RHEUMATOID ARTHRITIS
     Dosage: 7 VILES EVERY 4 T 6 WEEKS
     Dates: start: 20010810, end: 20090510

REACTIONS (7)
  - ABDOMINAL PAIN [None]
  - BRAIN INJURY [None]
  - DEMYELINATION [None]
  - DIARRHOEA [None]
  - ECONOMIC PROBLEM [None]
  - LOSS OF EMPLOYMENT [None]
  - VOMITING [None]
